FAERS Safety Report 7791658-8 (Version None)
Quarter: 2011Q4

REPORT INFORMATION
  Report Type: 
  Country: None (occurrence: None)
  Receive Date: 20111003
  Receipt Date: 20110922
  Transmission Date: 20120403
  Serious: No
  Sender: FDA-Public Use
  Company Number: US-JNJFOC-20110910977

PATIENT
  Sex: Female
  Weight: 65.77 kg

DRUGS (2)
  1. LOTREL [Concomitant]
     Indication: HYPERTENSION
     Route: 048
  2. FENTANYL-100 [Suspect]
     Indication: ARTHROPATHY
     Route: 062
     Dates: start: 20110801

REACTIONS (4)
  - HYPERHIDROSIS [None]
  - PAIN [None]
  - PRODUCT QUALITY ISSUE [None]
  - DRUG DOSE OMISSION [None]
